FAERS Safety Report 4299411-7 (Version None)
Quarter: 2004Q1

REPORT INFORMATION
  Report Type: 
  Country: None (occurrence: None)
  Receive Date: 20040217
  Receipt Date: 20040205
  Transmission Date: 20041129
  Serious: No
  Sender: FDA-Public Use
  Company Number: 2004GB00328

PATIENT
  Sex: Female

DRUGS (1)
  1. SEROQUEL [Suspect]
     Dates: start: 20040101

REACTIONS (1)
  - NEUTROPENIA [None]
